FAERS Safety Report 24769691 (Version 1)
Quarter: 2024Q4

REPORT INFORMATION
  Report Type: Spontaneous
  Country: CN (occurrence: CN)
  Receive Date: 20241224
  Receipt Date: 20241224
  Transmission Date: 20250115
  Serious: Yes (Death, Hospitalization)
  Sender: STRIDES
  Company Number: CN-STRIDES ARCOLAB LIMITED-2024SP016884

PATIENT
  Age: 17 Year
  Sex: Male

DRUGS (19)
  1. PREDNISOLONE [Suspect]
     Active Substance: PREDNISOLONE
     Indication: B-cell type acute leukaemia
     Dosage: UNK, CYCLICAL (AS A PART OF VILP REGIMEN)
     Route: 065
     Dates: start: 2020
  2. PREDNISOLONE [Suspect]
     Active Substance: PREDNISOLONE
     Indication: Chemotherapy
  3. METHOTREXATE [Suspect]
     Active Substance: METHOTREXATE
     Indication: B-cell type acute leukaemia
     Dosage: UNK, CYCLICAL (HIGH-DOSE)
     Route: 065
  4. VINCRISTINE [Suspect]
     Active Substance: VINCRISTINE
     Indication: B-cell type acute leukaemia
     Dosage: UNK, CYCLICAL (AS A PART OF VILD REGIMEN)
     Route: 065
  5. VINCRISTINE [Suspect]
     Active Substance: VINCRISTINE
     Indication: Chemotherapy
     Dosage: UNK CYCLICAL (AS A PART OF HYPER CVAD REGIMEN)
     Route: 065
  6. VINCRISTINE [Suspect]
     Active Substance: VINCRISTINE
     Dosage: UNK, CYCLICAL (AS A PART OF VILP REGIMEN)
     Route: 065
     Dates: start: 2020
  7. IDARUBICIN [Suspect]
     Active Substance: IDARUBICIN
     Indication: B-cell type acute leukaemia
     Dosage: UNK, CYCLICAL  (AS A PART OF VILD REGIMEN)
     Route: 065
  8. IDARUBICIN [Suspect]
     Active Substance: IDARUBICIN
     Indication: Chemotherapy
     Dosage: UNK, CYCLICAL  (AS A PART OF VILP REGIMEN)
     Route: 065
     Dates: start: 2020
  9. ASPARAGINASE [Suspect]
     Active Substance: ASPARAGINASE
     Indication: B-cell type acute leukaemia
     Dosage: UNK, CYCLICAL  (AS A PART OF VILD REGIMEN)
     Route: 065
  10. ASPARAGINASE [Suspect]
     Active Substance: ASPARAGINASE
     Indication: Chemotherapy
     Dosage: UNK, CYCLICAL  (AS A PART OF VILP REGIMEN)
     Route: 065
     Dates: start: 2020
  11. DEXAMETHASONE [Suspect]
     Active Substance: DEXAMETHASONE
     Indication: B-cell type acute leukaemia
     Dosage: UNK, CYCLICAL (AS A PART OF VILD REGIMEN)
     Route: 065
  12. DEXAMETHASONE [Suspect]
     Active Substance: DEXAMETHASONE
     Dosage: UNK, CYCLICAL (~AS A PART OF HYPER CVAD REGIMEN)
     Route: 065
  13. CYCLOPHOSPHAMIDE [Suspect]
     Active Substance: CYCLOPHOSPHAMIDE
     Indication: B-cell type acute leukaemia
     Dosage: UNK, CYCLICAL (AS A PART OF HYPER CVAD REGIMEN)
     Route: 065
  14. CYCLOPHOSPHAMIDE [Suspect]
     Active Substance: CYCLOPHOSPHAMIDE
     Indication: Lymphodepletion
     Dosage: UNK
     Route: 065
     Dates: start: 202008
  15. DOXORUBICIN [Suspect]
     Active Substance: DOXORUBICIN
     Indication: B-cell type acute leukaemia
     Dosage: UNK, CYCLICAL (AS A PART OF HYPER CVAD REGIMEN)
     Route: 065
  16. CYTARABINE [Suspect]
     Active Substance: CYTARABINE
     Indication: B-cell type acute leukaemia
     Dosage: UNK, CYCLICAL (HIGH-DOSE)
     Route: 065
  17. FLUDARABINE [Suspect]
     Active Substance: FLUDARABINE PHOSPHATE
     Indication: Lymphodepletion
     Dosage: UNK
     Route: 065
     Dates: start: 202008
  18. TOCILIZUMAB [Suspect]
     Active Substance: TOCILIZUMAB
     Indication: Cytokine release syndrome
     Dosage: UNK
     Route: 065
     Dates: start: 2020
  19. VORICONAZOLE [Concomitant]
     Active Substance: VORICONAZOLE
     Indication: Antifungal prophylaxis
     Dosage: UNK
     Route: 048

REACTIONS (12)
  - Shock [Fatal]
  - Pneumonitis [Fatal]
  - Sinusitis fungal [Fatal]
  - Escherichia infection [Unknown]
  - Aspergillus infection [Unknown]
  - Candida infection [Unknown]
  - Fusarium infection [Unknown]
  - Human herpesvirus 7 infection [Unknown]
  - Human polyomavirus infection [Unknown]
  - Papilloma viral infection [Unknown]
  - Viral infection [Unknown]
  - Hepatitis C [Unknown]

NARRATIVE: CASE EVENT DATE: 20200101
